FAERS Safety Report 12476392 (Version 1)
Quarter: 2016Q2

REPORT INFORMATION
  Report Type: Report from Study
  Country: JP (occurrence: JP)
  Receive Date: 20160617
  Receipt Date: 20160617
  Transmission Date: 20160815
  Serious: Yes (Other)
  Sender: FDA-Public Use
  Company Number: PHJP1997JP002702

PATIENT
  Age: 52 Year
  Sex: Male
  Weight: 63.3 kg

DRUGS (11)
  1. DORNER [Concomitant]
     Active Substance: BERAPROST SODIUM
     Indication: NEPHROTIC SYNDROME
     Dosage: 20 UG, UNK
     Route: 048
     Dates: start: 19961031, end: 19970428
  2. SANDIMMUN [Suspect]
     Active Substance: CYCLOSPORINE
     Indication: NEPHROTIC SYNDROME
     Dosage: 150 MG, UNK
     Route: 048
     Dates: start: 19970117, end: 19970201
  3. NORMELAN [Concomitant]
     Indication: NEPHROTIC SYNDROME
     Dosage: 5 MG, UNK
     Route: 048
     Dates: start: 19970103, end: 19970317
  4. WARFARIN//WARFARIN POTASSIUM [Concomitant]
     Indication: NEPHROTIC SYNDROME
     Dosage: 5 MG, UNK
     Route: 048
     Dates: start: 19880826, end: 19970428
  5. SINLESTAL [Concomitant]
     Indication: NEPHROTIC SYNDROME
     Dosage: 500 MG, UNK
     Route: 048
     Dates: start: 19970106, end: 19970428
  6. EUGLUCON [Concomitant]
     Active Substance: GLYBURIDE
     Indication: DIABETES MELLITUS
     Dosage: 1.25 MG, UNK
     Route: 048
     Dates: start: 19911004, end: 19970428
  7. SANDIMMUN [Suspect]
     Active Substance: CYCLOSPORINE
     Dosage: 250 MG, UNK
     Route: 048
     Dates: start: 19970210, end: 19970312
  8. GASTER//FAMOTIDINE [Concomitant]
     Indication: PRODUCT USED FOR UNKNOWN INDICATION
     Dosage: 20 MG, UNK
     Route: 048
     Dates: start: 19920424, end: 19970428
  9. LASIX//FUROSEMIDE [Concomitant]
     Indication: NEPHROTIC SYNDROME
     Dosage: 80 MG, UNK
     Route: 048
     Dates: start: 19970103, end: 19970317
  10. SANDIMMUN [Suspect]
     Active Substance: CYCLOSPORINE
     Dosage: 200 MG, UNK
     Route: 048
     Dates: start: 19970202, end: 19970209
  11. SANDIMMUN [Suspect]
     Active Substance: CYCLOSPORINE
     Dosage: 200 MG, UNK
     Route: 048
     Dates: start: 19970313, end: 19970428

REACTIONS (4)
  - Hepatic function abnormal [Recovered/Resolved]
  - Persistent depressive disorder [Recovering/Resolving]
  - Insomnia [Recovering/Resolving]
  - Gingival hyperplasia [Recovering/Resolving]

NARRATIVE: CASE EVENT DATE: 19970217
